FAERS Safety Report 9241182 (Version 1)
Quarter: 2013Q2

REPORT INFORMATION
  Report Type: Spontaneous
  Country: CH (occurrence: CH)
  Receive Date: 20130419
  Receipt Date: 20130419
  Transmission Date: 20140414
  Serious: Yes (Other)
  Sender: FDA-Public Use
  Company Number: CH-BRISTOL-MYERS SQUIBB COMPANY-18772590

PATIENT
  Age: 58 Year
  Sex: Female

DRUGS (2)
  1. PARAPLATIN [Suspect]
     Dosage: 1DF: AUC5
  2. ALIMTA [Suspect]

REACTIONS (3)
  - Bone marrow failure [Unknown]
  - Hepatitis cholestatic [Recovering/Resolving]
  - Blood creatinine increased [Unknown]
